FAERS Safety Report 5254734-X (Version None)
Quarter: 2007Q1

REPORT INFORMATION
  Report Type: 
  Country: None (occurrence: None)
  Receive Date: 20070228
  Receipt Date: 20070215
  Transmission Date: 20070707
  Serious: Yes (Hospitalization)
  Sender: FDA-Public Use
  Company Number: 2007US000236

PATIENT
  Age: 72 Year
  Sex: Female

DRUGS (22)
  1. PROGRAF [Suspect]
     Indication: KIDNEY TRANSPLANT REJECTION
     Dosage: 75 MG,BID, ORAL
     Route: 048
     Dates: start: 20050412
  2. MYCOPHENOLATE MOFETIL [Suspect]
     Indication: KIDNEY TRANSPLANT REJECTION
     Dosage: 1000 MG, BID,ORAL
     Route: 048
     Dates: start: 20050225
  3. CYCLOSPORINE [Suspect]
     Indication: KIDNEY TRANSPLANT REJECTION
     Dosage: 100 MG, BID, ORAL
     Route: 048
     Dates: start: 20050412
  4. PREDNISONE TAB [Suspect]
     Indication: KIDNEY TRANSPLANT REJECTION
     Dosage: 10 MG, ORAL
     Route: 048
     Dates: start: 20050225
  5. CYTOVENE [Concomitant]
  6. DIFLUCAN [Concomitant]
  7. DAPSONE [Concomitant]
  8. ASPIRIN [Concomitant]
  9. COLCHICINE (COLCHICINE) [Concomitant]
  10. CARDIZEM CD [Concomitant]
  11. K-PHOS NEUTRAL (POTASSIUM PHOSPHATE MONOBASIC, SODIUM PHOSPHATE DIBASI [Concomitant]
  12. BENEMID [Concomitant]
  13. TOPROL-XL [Concomitant]
  14. ACIPHEX [Concomitant]
  15. MAGNESIUM OXIDE (MAGNESIUM OXIDE) [Concomitant]
  16. EVISTA [Concomitant]
  17. MULTIVITAMIN [Concomitant]
  18. CALCIUM (ASCORBIC ACID) [Concomitant]
  19. ZENAPAX [Concomitant]
  20. IMDUR [Concomitant]
  21. LASIX [Concomitant]
  22. DIGOXIN [Concomitant]

REACTIONS (1)
  - OESOPHAGEAL SPASM [None]
